FAERS Safety Report 8976682 (Version 2)
Quarter: 2012Q4

REPORT INFORMATION
  Report Type: Report from Study
  Country: US (occurrence: US)
  Receive Date: 20121220
  Receipt Date: 20121228
  Transmission Date: 20130627
  Serious: Yes (Disabling, Other)
  Sender: FDA-Public Use
  Company Number: US-ROCHE-1055067

PATIENT
  Age: 55 Year
  Sex: Male
  Weight: 48.58 kg

DRUGS (15)
  1. PEG-INTERFERON ALFA 2A [Suspect]
     Indication: HEPATITIS C
     Route: 058
     Dates: start: 20120309, end: 20120820
  2. PEG-INTERFERON ALFA 2A [Suspect]
     Route: 058
  3. RIBAVIRIN [Suspect]
     Indication: HEPATITIS C
     Route: 048
     Dates: start: 20120309, end: 20120820
  4. RIBAVIRIN [Suspect]
     Route: 048
     Dates: end: 20120817
  5. RIBAVIRIN [Suspect]
     Route: 048
     Dates: end: 20120820
  6. PROSCAR [Concomitant]
     Indication: BENIGN PROSTATIC HYPERPLASIA
     Dosage: daily
     Route: 048
  7. LISINOPRIL [Concomitant]
     Indication: BLOOD PRESSURE
     Dosage: daily
     Route: 048
  8. LISINOPRIL [Concomitant]
     Dosage: dose reduced
     Route: 065
  9. LOPRESSOR [Concomitant]
     Indication: BLOOD PRESSURE
     Route: 048
  10. XANAX [Concomitant]
     Indication: ANXIETY
     Route: 048
  11. NORVASC [Concomitant]
     Indication: HYPERTENSION
     Route: 048
  12. HCL [Concomitant]
     Indication: HYPERTENSION
     Route: 048
  13. METOPROLOL [Concomitant]
     Route: 048
  14. TORADOL [Concomitant]
     Route: 030
  15. IMITREX [Concomitant]

REACTIONS (9)
  - Headache [Not Recovered/Not Resolved]
  - CSF protein increased [Unknown]
  - Headache [Not Recovered/Not Resolved]
  - Influenza [Unknown]
  - Tooth disorder [Unknown]
  - Insomnia [Unknown]
  - Disturbance in attention [Unknown]
  - Meningitis [Unknown]
  - Blood immunoglobulin G increased [Unknown]
